FAERS Safety Report 16592045 (Version 1)
Quarter: 2019Q3

REPORT INFORMATION
  Report Type: Spontaneous
  Country: US (occurrence: US)
  Receive Date: 20190718
  Receipt Date: 20190718
  Transmission Date: 20191004
  Serious: No
  Sender: FDA-Public Use
  Company Number: US-009507513-1907USA011188

PATIENT
  Sex: Female
  Weight: 55.33 kg

DRUGS (1)
  1. NEXPLANON [Suspect]
     Active Substance: ETONOGESTREL
     Indication: CONTRACEPTION
     Dosage: EVERY 5 YEARS
     Route: 059
     Dates: start: 20181201

REACTIONS (2)
  - Pruritus generalised [Not Recovered/Not Resolved]
  - Inappropriate schedule of product administration [Unknown]
